FAERS Safety Report 25461916 (Version 1)
Quarter: 2025Q2

REPORT INFORMATION
  Report Type: Spontaneous
  Country: US (occurrence: US)
  Receive Date: 20250620
  Receipt Date: 20250620
  Transmission Date: 20250716
  Serious: Yes (Other)
  Sender: SANOFI AVENTIS
  Company Number: US-SANOFI-02561371

PATIENT
  Age: 68 Year
  Sex: Female

DRUGS (1)
  1. LANTUS SOLOSTAR [Suspect]
     Active Substance: INSULIN GLARGINE
     Indication: Diabetes mellitus
     Dosage: 25 U, HS
     Route: 058

REACTIONS (3)
  - Blindness [Unknown]
  - Injection site pain [Recovered/Resolved]
  - Device defective [Unknown]

NARRATIVE: CASE EVENT DATE: 20250617
